FAERS Safety Report 12934806 (Version 1)
Quarter: 2016Q4

REPORT INFORMATION
  Report Type: Spontaneous
  Country: CN (occurrence: CN)
  Receive Date: 20161112
  Receipt Date: 20161112
  Transmission Date: 20170207
  Serious: Yes (Hospitalization, Other)
  Sender: FDA-Public Use
  Company Number: CN-JNJFOC-20161108929

PATIENT
  Age: 54 Year
  Sex: Male
  Weight: 52 kg

DRUGS (3)
  1. IMODIUM [Suspect]
     Active Substance: LOPERAMIDE HYDROCHLORIDE
     Route: 048
  2. IMODIUM [Suspect]
     Active Substance: LOPERAMIDE HYDROCHLORIDE
     Indication: MALABSORPTION
     Dosage: 4 MG FOR THE FIRST TIME AND LATER TOOK 2 MG IN EVERY 2 HOUR
     Route: 048
     Dates: start: 20160331, end: 20160401
  3. SMECTA [Concomitant]
     Active Substance: MONTMORILLONITE
     Indication: MALABSORPTION
     Route: 048
     Dates: start: 20160331, end: 20160401

REACTIONS (3)
  - Intestinal obstruction [Recovering/Resolving]
  - Abdominal pain [Recovering/Resolving]
  - Incorrect dose administered [Unknown]

NARRATIVE: CASE EVENT DATE: 20160331
